FAERS Safety Report 8272376-9 (Version None)
Quarter: 2012Q2

REPORT INFORMATION
  Report Type: 
  Country: None (occurrence: None)
  Receive Date: 20120410
  Receipt Date: 20120403
  Transmission Date: 20120825
  Serious: Yes (Hospitalization, Other)
  Sender: FDA-Public Use
  Company Number: FR-PFIZER INC-2012083532

PATIENT
  Age: 79 Year
  Sex: Male

DRUGS (7)
  1. BISOPROLOL FUMARATE [Concomitant]
     Indication: CARDIAC FAILURE CHRONIC
     Dosage: 2.5 MG, 1X/DAY
     Route: 048
     Dates: start: 20090101
  2. ATORVASTATIN [Suspect]
     Indication: PROPHYLAXIS
     Dosage: 40 MG, 1X/DAY
     Route: 048
     Dates: start: 20100501
  3. ATORVASTATIN [Interacting]
     Dosage: 40 MG, 1X/DAY
     Route: 048
     Dates: start: 20111220, end: 20120116
  4. DILTIAZEM HCL [Interacting]
     Indication: ANGINA PECTORIS
     Dosage: 90 MG, 1X/DAY
     Route: 048
     Dates: start: 20090101
  5. ADANCOR [Concomitant]
     Indication: PROPHYLAXIS
     Dosage: 10 MG, 1X/DAY
     Route: 048
     Dates: start: 20090101
  6. FUROSEMIDE [Concomitant]
     Indication: HYPERTENSION
     Dosage: 20 MG, 1X/DAY
     Route: 048
     Dates: start: 20090101
  7. NITROGLYCERIN [Concomitant]
     Dosage: 15 MG/24H, 1X/DAY
     Route: 062
     Dates: start: 20090101

REACTIONS (4)
  - RENAL FAILURE ACUTE [None]
  - HEPATOCELLULAR INJURY [None]
  - DRUG INTERACTION [None]
  - RHABDOMYOLYSIS [None]
